FAERS Safety Report 5770386-4 (Version None)
Quarter: 2008Q2

REPORT INFORMATION
  Report Type: 
  Country: None (occurrence: None)
  Receive Date: 20080613
  Receipt Date: 20080501
  Transmission Date: 20081010
  Serious: No
  Sender: FDA-Public Use
  Company Number: US-ABBOTT-08P-163-0450164-00

PATIENT
  Sex: Female
  Weight: 71.278 kg

DRUGS (5)
  1. HUMIRA [Suspect]
     Indication: RHEUMATOID ARTHRITIS
     Dates: start: 20020101, end: 20071101
  2. HUMIRA [Suspect]
     Dates: start: 20020101, end: 20071101
  3. HUMIRA [Suspect]
     Indication: RHEUMATOID ARTHRITIS
     Dates: start: 20080501
  4. METHOTREXATE [Concomitant]
     Indication: RHEUMATOID ARTHRITIS
     Route: 048
     Dates: start: 20020101, end: 20071101
  5. METHOTREXATE [Concomitant]
     Route: 048
     Dates: start: 20080501

REACTIONS (7)
  - ACCIDENTAL EXPOSURE [None]
  - HAEMATEMESIS [None]
  - HELICOBACTER INFECTION [None]
  - INJECTION SITE HAEMORRHAGE [None]
  - INJECTION SITE PAIN [None]
  - PAIN [None]
  - ULCER HAEMORRHAGE [None]
